FAERS Safety Report 6261156-1 (Version None)
Quarter: 2009Q3

REPORT INFORMATION
  Report Type: 
  Country: None (occurrence: None)
  Receive Date: 20090709
  Receipt Date: 20080624
  Transmission Date: 20100115
  Serious: No
  Sender: FDA-Public Use
  Company Number: US-KINGPHARMUSA00001-K200800743

PATIENT
  Age: 60 Year
  Sex: Male

DRUGS (3)
  1. LEVOXYL [Suspect]
     Indication: HYPOTHYROIDISM
     Dosage: 200 MCG, QD
     Route: 048
     Dates: start: 19930101
  2. LEVOXYL [Suspect]
     Dosage: 25 MCG, QD
     Route: 048
     Dates: start: 19930101
  3. LOPRESSOR [Concomitant]
     Indication: HYPERTENSION
     Dosage: UNK, UNK
     Dates: start: 19930101

REACTIONS (1)
  - ORAL DISCOMFORT [None]
